FAERS Safety Report 24996114 (Version 1)
Quarter: 2025Q1

REPORT INFORMATION
  Report Type: Spontaneous
  Country: US (occurrence: US)
  Receive Date: 20250221
  Receipt Date: 20250221
  Transmission Date: 20250408
  Serious: No
  Sender: CATALYST PHARMA
  Company Number: US-CATALYST PHARMACEUTICALS-US-CATA-25-00131

PATIENT
  Age: 19 Year
  Sex: Male
  Weight: 70.748 kg

DRUGS (9)
  1. AGAMREE [Suspect]
     Active Substance: VAMOROLONE
     Indication: Duchenne muscular dystrophy
     Dosage: 7.5 ML ONCE A DAY
     Route: 048
     Dates: start: 20240426
  2. TUMS ULTRA [Concomitant]
     Active Substance: CALCIUM CARBONATE
     Indication: Bone disorder
     Dosage: 1000 MG TWICE DAILY
     Route: 065
  3. VITAMIN D3 [Concomitant]
     Active Substance: CHOLECALCIFEROL
     Indication: Bone disorder
     Dosage: 5000 UNITS ONCE A DAY
     Route: 065
  4. AMONDYS [Concomitant]
     Indication: Duchenne muscular dystrophy
     Dosage: WEEKLY
     Route: 042
  5. SPIRONOLACTONE [Concomitant]
     Active Substance: SPIRONOLACTONE
     Indication: Cardiovascular disorder
     Dosage: 50 MG ONCE A DAY
     Route: 065
  6. LISINOPRIL [Concomitant]
     Active Substance: LISINOPRIL
     Indication: Cardiovascular disorder
     Dosage: 10 MG ONCE A DAY
     Route: 065
  7. CARVEDILOL [Concomitant]
     Active Substance: CARVEDILOL
     Indication: Cardiovascular disorder
     Dosage: 3.125 MG TWICE DAILY
     Route: 065
  8. PEPCID [Concomitant]
     Active Substance: FAMOTIDINE
     Indication: Gastrointestinal disorder prophylaxis
     Dosage: 20 MG ONCE A DAY
     Route: 065
  9. MULTIVITAMIN GUMMY [Concomitant]
     Indication: Hypovitaminosis
     Dosage: 2 GUMMIES ONCE A DAY
     Route: 065

REACTIONS (3)
  - Viral infection [Recovered/Resolved]
  - Product dose omission issue [Unknown]
  - Product use complaint [Unknown]

NARRATIVE: CASE EVENT DATE: 20250117
